FAERS Safety Report 16522427 (Version 8)
Quarter: 2020Q3

REPORT INFORMATION
  Report Type: Spontaneous
  Country: US (occurrence: US)
  Receive Date: 20190703
  Receipt Date: 20200820
  Transmission Date: 20201102
  Serious: Yes (Other)
  Sender: FDA-Public Use
  Company Number: US-PFIZER INC-2018452082

PATIENT
  Age: 50 Year
  Sex: Female
  Weight: 86 kg

DRUGS (25)
  1. LYRICA [Suspect]
     Active Substance: PREGABALIN
     Dosage: 300 MG, 4X/DAY
     Route: 048
     Dates: start: 20190614
  2. DULOXETINE. [Concomitant]
     Active Substance: DULOXETINE
     Indication: MUSCULOSKELETAL PAIN
     Dosage: 60 MG, DAILY
     Route: 048
     Dates: start: 20190521
  3. ZOLPIDEM [Concomitant]
     Active Substance: ZOLPIDEM TARTRATE
     Dosage: 10 MG, 1X/DAY (AT BEDTIME)
     Route: 048
     Dates: start: 20190209
  4. CYCLOBENZAPRINE. [Concomitant]
     Active Substance: CYCLOBENZAPRINE
     Dosage: 10 MG, AS NEEDED (3 TIMES DAILY)
     Route: 048
     Dates: start: 20190703
  5. METHADONE [Concomitant]
     Active Substance: METHADONE HYDROCHLORIDE
     Dosage: 10 MG, AS NEEDED (3 TIMES DAILY)
     Route: 048
     Dates: start: 20190703, end: 2019
  6. OMNITROPE [Concomitant]
     Active Substance: SOMATROPIN
     Dosage: 0.36 MG, AS NEEDED
     Route: 058
     Dates: start: 20181022
  7. ATIVAN [Concomitant]
     Active Substance: LORAZEPAM
     Dosage: 1 MG, AS NEEDED (0.5 TABLET 3 TIMES DAILY)
     Route: 048
     Dates: start: 20190221
  8. ESTRADIOL. [Concomitant]
     Active Substance: ESTRADIOL
     Dosage: 1 MG, DAILY
     Route: 048
     Dates: start: 20190318
  9. PROAIR HFA [Concomitant]
     Active Substance: ALBUTEROL SULFATE
     Dosage: 2 DF (2 PUFFS), AS NEEDED (EVERY 4 ? 6 HOURS AS NEEDED)
     Route: 055
     Dates: start: 20180521, end: 2018
  10. VITAMIN B12 [Concomitant]
     Active Substance: CYANOCOBALAMIN
     Dosage: 1 ML, MONTHLY
     Route: 030
     Dates: start: 20190828
  11. XOPENEX [Concomitant]
     Active Substance: LEVALBUTEROL HYDROCHLORIDE
     Dosage: 3 ML, 3X/DAY (EVERY 8 HRS)
     Dates: start: 20160413
  12. LYRICA [Suspect]
     Active Substance: PREGABALIN
     Indication: NEUROPATHY PERIPHERAL
     Dosage: 200 MG, 3X/DAY
     Route: 048
  13. LYRICA [Suspect]
     Active Substance: PREGABALIN
     Indication: FIBROMYALGIA
     Dosage: 300 MG, 2X/DAY
     Route: 048
     Dates: start: 20180612
  14. ACETAMINOPHEN;HYDROCODONE [Concomitant]
     Active Substance: ACETAMINOPHEN\HYDROCODONE
     Dosage: HYDROCODONE 10 MG/ACETAMINOPHEN 325 MG, AS NEEDED
     Route: 048
     Dates: start: 20190819
  15. PREDNISONE. [Concomitant]
     Active Substance: PREDNISONE
     Dosage: 5 MG, DAILY
     Route: 048
     Dates: start: 20190521
  16. PROAIR HFA [Concomitant]
     Active Substance: ALBUTEROL SULFATE
     Dosage: 2 DF (2 PUFFS), AS NEEDED (EVERY 4 TO 6 HRS)
     Route: 055
     Dates: start: 20180608
  17. SOMA [Concomitant]
     Active Substance: CARISOPRODOL
     Dosage: 350 MG, AS NEEDED (3 TIMES DAILY)
     Route: 048
     Dates: start: 20180612
  18. FLUCONAZOLE. [Concomitant]
     Active Substance: FLUCONAZOLE
     Dosage: 150 MG, 1X/DAY
     Route: 048
     Dates: start: 20190521
  19. ACETAMINOPHEN;HYDROCODONE [Concomitant]
     Active Substance: ACETAMINOPHEN\HYDROCODONE
     Indication: PAIN
     Dosage: HYDROCODONE 10 MG/ACETAMINOPHEN 325 MG, AS NEEDED (EVERY 4 TO 6 HRS)
     Route: 048
     Dates: start: 20190703, end: 2019
  20. METHADONE [Concomitant]
     Active Substance: METHADONE HYDROCHLORIDE
     Dosage: 10 MG, AS NEEDED (3 TIMES DAILY)
     Route: 048
     Dates: start: 20190819
  21. PHENTERMINE. [Concomitant]
     Active Substance: PHENTERMINE
     Dosage: 37.5 MG, 1X/DAY (BEFORE BREAKFAST)
     Route: 048
     Dates: start: 20190219, end: 2019
  22. LYRICA [Suspect]
     Active Substance: PREGABALIN
     Indication: INTERVERTEBRAL DISC DEGENERATION
     Dosage: 25 MG, 3X/DAY
     Route: 048
  23. LYRICA [Suspect]
     Active Substance: PREGABALIN
     Indication: PAIN
     Dosage: 300 MG, 3X/DAY
     Route: 048
  24. LYRICA [Suspect]
     Active Substance: PREGABALIN
     Dosage: 300 MG, 4X/DAY
     Route: 048
  25. PHENTERMINE. [Concomitant]
     Active Substance: PHENTERMINE
     Dosage: 37.5 MG, 1X/DAY (BEFORE BREAKFAST)
     Route: 048
     Dates: start: 20190820

REACTIONS (21)
  - Urine odour abnormal [Not Recovered/Not Resolved]
  - Musculoskeletal pain [Not Recovered/Not Resolved]
  - Depression [Unknown]
  - Gait disturbance [Unknown]
  - Fatigue [Unknown]
  - Mobility decreased [Unknown]
  - Asthenia [Unknown]
  - Prescribed overdose [Unknown]
  - Chest discomfort [Unknown]
  - Muscle spasms [Unknown]
  - Neck pain [Unknown]
  - Blood potassium decreased [Unknown]
  - Headache [Recovering/Resolving]
  - Chest pain [Unknown]
  - Dyspnoea [Unknown]
  - Oedema [Unknown]
  - Urinary tract infection fungal [Not Recovered/Not Resolved]
  - Drug ineffective [Unknown]
  - Middle insomnia [Unknown]
  - Arthralgia [Unknown]
  - Nausea [Unknown]
